FAERS Safety Report 8954570 (Version 1)
Quarter: 2012Q4

REPORT INFORMATION
  Report Type: 
  Country: DE (occurrence: DE)
  Receive Date: 20121209
  Receipt Date: 20121209
  Transmission Date: 20130627
  Serious: Yes (Other)
  Sender: FDA-Public Use
  Company Number: DE-ROXANE LABORATORIES, INC.-2012-RO-02513RO

PATIENT
  Age: 54 Year
  Sex: Female

DRUGS (3)
  1. CITALOPRAM [Suspect]
     Indication: DEPRESSION
  2. SEROQUEL [Suspect]
     Indication: DEPRESSION
  3. AMITRYPTILIN [Suspect]
     Indication: DEPRESSION

REACTIONS (2)
  - Epistaxis [Recovered/Resolved]
  - Conjunctival haemorrhage [Recovered/Resolved]
